FAERS Safety Report 15244397 (Version 1)
Quarter: 2018Q3

REPORT INFORMATION
  Report Type: Spontaneous
  Country: ES (occurrence: ES)
  Receive Date: 20180806
  Receipt Date: 20180806
  Transmission Date: 20181010
  Serious: Yes (Hospitalization)
  Sender: FDA-Public Use
  Company Number: ES-MYLANLABS-2018M1057651

PATIENT
  Age: 91 Year
  Sex: Male

DRUGS (1)
  1. IBUPROFEN. [Suspect]
     Active Substance: IBUPROFEN
     Indication: SELF-MEDICATION
     Dosage: UNK
     Route: 048
     Dates: start: 20180218, end: 20180418

REACTIONS (1)
  - Upper gastrointestinal haemorrhage [Recovered/Resolved]

NARRATIVE: CASE EVENT DATE: 20180418
